FAERS Safety Report 25191639 (Version 1)
Quarter: 2025Q2

REPORT INFORMATION
  Report Type: Spontaneous
  Country: US (occurrence: US)
  Receive Date: 20250414
  Receipt Date: 20250414
  Transmission Date: 20250716
  Serious: Yes (Life-Threatening, Hospitalization)
  Sender: MYLAN
  Company Number: US-MYLANLABS-2025M1031733

PATIENT
  Age: 13 Year
  Sex: Male

DRUGS (9)
  1. EPINEPHRINE [Suspect]
     Active Substance: EPINEPHRINE
     Indication: Subcutaneous emphysema
  2. EPINEPHRINE [Suspect]
     Active Substance: EPINEPHRINE
     Indication: Asthmatic crisis
  3. ALBUTEROL [Suspect]
     Active Substance: ALBUTEROL
     Indication: Subcutaneous emphysema
  4. ALBUTEROL [Suspect]
     Active Substance: ALBUTEROL
     Indication: Asthmatic crisis
  5. MAGNESIUM [Suspect]
     Active Substance: MAGNESIUM
     Indication: Subcutaneous emphysema
  6. MAGNESIUM [Suspect]
     Active Substance: MAGNESIUM
     Indication: Asthmatic crisis
  7. AMINOPHYLLINE [Suspect]
     Active Substance: AMINOPHYLLINE
     Indication: Subcutaneous emphysema
  8. KETAMINE [Suspect]
     Active Substance: KETAMINE
     Indication: Subcutaneous emphysema
  9. SEVOFLURANE [Suspect]
     Active Substance: SEVOFLURANE
     Indication: Subcutaneous emphysema

REACTIONS (1)
  - Drug ineffective [Unknown]
